FAERS Safety Report 20870423 (Version 2)
Quarter: 2022Q2

REPORT INFORMATION
  Report Type: Report from Study
  Country: US (occurrence: US)
  Receive Date: 20220525
  Receipt Date: 20220530
  Transmission Date: 20220721
  Serious: No
  Sender: FDA-Public Use
  Company Number: US-NOVARTISTESTPH-NVSC2022US119732

PATIENT
  Sex: Female
  Weight: 63.583 kg

DRUGS (1)
  1. TREPROSTINIL [Suspect]
     Active Substance: TREPROSTINIL
     Indication: Pulmonary arterial hypertension
     Dosage: UNK UNK, CONT, 11 NG/KG/MIN
     Route: 042
     Dates: start: 20220428

REACTIONS (2)
  - Complication associated with device [Unknown]
  - Device connection issue [Unknown]
